FAERS Safety Report 5497899-7 (Version None)
Quarter: 2007Q4

REPORT INFORMATION
  Report Type: 
  Country: None (occurrence: None)
  Receive Date: 20071018
  Receipt Date: 20060925
  Transmission Date: 20080405
  Serious: Yes (Other)
  Sender: FDA-Public Use
  Company Number: 2006117137

PATIENT
  Age: 24 Year
  Sex: Male
  Weight: 124.7392 kg

DRUGS (1)
  1. NEURONTIN [Suspect]
     Indication: ILL-DEFINED DISORDER
     Dosage: ORAL
     Route: 048
     Dates: start: 20010101, end: 20020101

REACTIONS (3)
  - HEADACHE [None]
  - SUICIDAL IDEATION [None]
  - THINKING ABNORMAL [None]
